FAERS Safety Report 7385328-8 (Version None)
Quarter: 2011Q1

REPORT INFORMATION
  Report Type: 
  Country: None (occurrence: None)
  Receive Date: 20110330
  Receipt Date: 20100804
  Transmission Date: 20110831
  Serious: No
  Sender: FDA-Public Use
  Company Number: US-MYLANLABS-2010S1014119

PATIENT
  Age: 68 Year
  Sex: Female
  Weight: 56.7 kg

DRUGS (2)
  1. EMSAM [Suspect]
     Indication: DEPRESSION
     Dosage: CHANGES PATCHES QD
     Route: 062
     Dates: start: 20100701
  2. WELLBUTRIN [Concomitant]
     Indication: DEPRESSION
     Dosage: IN THE PROCESS OF WEANING THE MEDICATION FOR DISCONTINUATION
     Route: 048

REACTIONS (1)
  - APPLICATION SITE ERYTHEMA [None]
